FAERS Safety Report 8142758 (Version 2)
Quarter: 2014Q2

REPORT INFORMATION
  Report Type: Spontaneous
  Country: US (occurrence: None)
  Receive Date: 20110823
  Receipt Date: 20140604
  Transmission Date: 20141212
  Serious: Yes (Hospitalization)
  Sender: FDA-Public Use
  Company Number: 20110622CINRY2075

PATIENT
  Age: 41 Year
  Sex: Female

DRUGS (22)
  1. CINRYZE [Suspect]
     Indication: HEREDITARY ANGIOEDEMA
     Dosage: (2 IN 1 WK), INTRAVENOUS
     Route: 042
  2. CINRYZE [Suspect]
     Indication: PROPHYLAXIS
     Dosage: (2 IN 1 WK), INTRAVENOUS
     Route: 042
  3. KALBITOR [Suspect]
     Indication: HEREDITARY ANGIOEDEMA
     Dosage: 30 MG (30 MG, 1 IN 1 D), 30 MG (30 MG, 1 IN 1 D)
     Dates: start: 20110606, end: 20110606
  4. ASTEPRO [Concomitant]
  5. WELLBUTRIN [Concomitant]
  6. ZYRTEC [Concomitant]
  7. FLOVENT [Concomitant]
  8. ATARAX [Concomitant]
  9. NASONEX [Concomitant]
  10. SINGULAIR [Concomitant]
  11. PREVACID [Concomitant]
  12. PHENERGAN [Concomitant]
  13. TOPAMAX [Concomitant]
  14. RELPAX [Concomitant]
  15. VICODIN [Concomitant]
  16. LIDODERM [Concomitant]
  17. MAXAIR [Concomitant]
  18. RANITIDINE [Concomitant]
  19. MAXALT (RIZATRIPTAN) [Concomitant]
  20. SENOKOT (SENNA ALEXANDRINA) [Concomitant]
  21. TYLENOL (PARACETAMOL) [Concomitant]
  22. PROTONIX [Concomitant]

REACTIONS (4)
  - Hereditary angioedema [None]
  - Incorrect drug administration rate [None]
  - Unevaluable event [None]
  - Off label use [None]
